FAERS Safety Report 5589996-2 (Version None)
Quarter: 2008Q1

REPORT INFORMATION
  Report Type: 
  Country: None (occurrence: None)
  Receive Date: 20080114
  Receipt Date: 20080111
  Transmission Date: 20080703
  Serious: Yes (Death)
  Sender: FDA-Public Use
  Company Number: US-ASTRAZENECA-2008UW00804

PATIENT
  Age: 26 Year
  Sex: Female

DRUGS (3)
  1. SEROQUEL [Suspect]
     Indication: CONVULSION
     Route: 048
  2. TOPAMAX [Concomitant]
  3. CYMBALTA [Concomitant]

REACTIONS (2)
  - DEATH [None]
  - NEOPLASM PROGRESSION [None]
